FAERS Safety Report 9476652 (Version 1)
Quarter: 2013Q3

REPORT INFORMATION
  Report Type: Spontaneous
  Country: US (occurrence: US)
  Receive Date: 20130826
  Receipt Date: 20130826
  Transmission Date: 20140515
  Serious: No
  Sender: FDA-Public Use
  Company Number: US-BRISTOL-MYERS SQUIBB COMPANY-17404583

PATIENT
  Sex: Female

DRUGS (2)
  1. KENALOG INJ [Suspect]
  2. DEPO-MEDROL [Suspect]

REACTIONS (1)
  - Fibromyalgia [Unknown]
